FAERS Safety Report 5668719-2 (Version None)
Quarter: 2008Q1

REPORT INFORMATION
  Report Type: 
  Country: None (occurrence: None)
  Receive Date: 20080311
  Receipt Date: 20080311
  Transmission Date: 20080703
  Serious: No
  Sender: FDA-Public Use
  Company Number: None

PATIENT
  Age: 70 Year
  Sex: Male

DRUGS (1)
  1. DOCETAXEL [Suspect]
     Indication: BREAST CANCER
     Dosage: 120MG OTHER IV
     Route: 042
     Dates: start: 20061213, end: 20061226

REACTIONS (7)
  - ERYTHEMA [None]
  - PAIN OF SKIN [None]
  - PRURITUS [None]
  - PURPURA [None]
  - RASH [None]
  - SKIN EXFOLIATION [None]
  - SKIN SWELLING [None]
